FAERS Safety Report 8156672-1 (Version None)
Quarter: 2012Q1

REPORT INFORMATION
  Report Type: 
  Country: None (occurrence: None)
  Receive Date: 20120222
  Receipt Date: 20120215
  Transmission Date: 20120608
  Serious: Yes (Hospitalization)
  Sender: FDA-Public Use
  Company Number: US-BAYER-2011-045359

PATIENT
  Age: 24 Year
  Sex: Female
  Weight: 68.481 kg

DRUGS (27)
  1. YAZ [Suspect]
     Indication: PREMENSTRUAL SYNDROME
  2. YASMIN [Suspect]
     Indication: CONTRACEPTION
     Dosage: UNK
     Route: 048
     Dates: start: 20030101, end: 20060101
  3. YASMIN [Suspect]
     Indication: PREMENSTRUAL SYNDROME
  4. DROSPIRENONE AND ETHINYL ESTRADIOL [Suspect]
     Indication: PREMENSTRUAL SYNDROME
  5. NSAID'S [Concomitant]
  6. MORPHINE [Concomitant]
     Dosage: UNK
     Dates: start: 20090501
  7. OXYCODONE HCL [Concomitant]
  8. PLAQUENIL [Concomitant]
     Dosage: 400 MG, DAILY
     Route: 048
  9. YAZ [Suspect]
     Indication: CONTRACEPTION
     Dosage: UNK
     Route: 048
     Dates: start: 20060101, end: 20080101
  10. DROSPIRENONE AND ETHINYL ESTRADIOL [Suspect]
     Indication: CONTRACEPTION
     Dosage: UNK
     Route: 048
     Dates: start: 20080101, end: 20100101
  11. PROVERA [Concomitant]
  12. PERCOCET [OXYCODONE HYDROCHLORIDE,OXYCODONE TEREPHTHALATE,PARACETA [Concomitant]
     Indication: PAIN
     Dosage: UNK UNK, PRN
  13. PREDNISONE [Concomitant]
     Indication: RHEUMATOID ARTHRITIS
     Dosage: 10 MG, DAILY
     Dates: start: 20090608
  14. VICODIN [Concomitant]
  15. AMITIZA [Concomitant]
     Dosage: UNK
     Dates: start: 20090501
  16. PAROXETINE [Concomitant]
     Dosage: UNK
     Dates: start: 20090501
  17. TOPICORT [Concomitant]
  18. OS-CAL [CALCIUM,ERGOCALCIFEROL] [Concomitant]
  19. AMBIEN [Concomitant]
     Dosage: UNK
     Dates: start: 20090501
  20. PROGESTIN INJ [Concomitant]
  21. CONTINUIN [Concomitant]
  22. PROTONIX [Concomitant]
     Dosage: 40 MG, BID
     Route: 048
  23. PHENERGAN [CEPHAEL SPP.,CHLOROF,CITRIC AC,DEXTROMET,PROMETHAZ,NA+, [Concomitant]
     Indication: NAUSEA
     Dosage: 25 MG, PRN
     Route: 048
  24. FOLIC ACID [Concomitant]
     Dosage: UNK
     Dates: start: 20090501
  25. LYRICA [Concomitant]
     Dosage: 150 MG, BID
  26. COMPAZINE [Concomitant]
     Dosage: UNK
     Dates: start: 20090501
  27. VISTARIL [Concomitant]
     Dosage: UNK
     Dates: start: 20090501

REACTIONS (3)
  - CHOLECYSTITIS CHRONIC [None]
  - PANCREATITIS [None]
  - GALLBLADDER DISORDER [None]
